FAERS Safety Report 18619865 (Version 1)
Quarter: 2020Q4

REPORT INFORMATION
  Report Type: Spontaneous
  Country: US (occurrence: US)
  Receive Date: 20201215
  Receipt Date: 20201215
  Transmission Date: 20210114
  Serious: Yes (Other)
  Sender: FDA-Public Use
  Company Number: US-PFIZER INC-2020491401

PATIENT
  Age: 60 Year

DRUGS (1)
  1. LYRICA [Suspect]
     Active Substance: PREGABALIN
     Dosage: UNK

REACTIONS (13)
  - Muscle disorder [Unknown]
  - Hypersensitivity [Unknown]
  - Pain in extremity [Unknown]
  - Nerve injury [Unknown]
  - Arthritis bacterial [Unknown]
  - Spinal pain [Unknown]
  - Limb discomfort [Unknown]
  - Spondylitis [Unknown]
  - Nasopharyngitis [Unknown]
  - Muscle injury [Unknown]
  - Neck pain [Unknown]
  - Fibromyalgia [Unknown]
  - Movement disorder [Unknown]
